FAERS Safety Report 16181477 (Version 3)
Quarter: 2019Q2

REPORT INFORMATION
  Report Type: Report from Study
  Country: None (occurrence: US)
  Receive Date: 20190410
  Receipt Date: 20190625
  Transmission Date: 20190711
  Serious: Yes (Death, Hospitalization, Other)
  Sender: FDA-Public Use
  Company Number: US-ABBVIE-19K-163-2736104-00

PATIENT
  Age: 76 Year
  Sex: Male
  Weight: 114 kg

DRUGS (14)
  1. VENCLEXTA [Suspect]
     Active Substance: VENETOCLAX
     Route: 048
     Dates: start: 20180721, end: 20180810
  2. VENCLEXTA [Suspect]
     Active Substance: VENETOCLAX
     Route: 048
     Dates: start: 20180820, end: 20180909
  3. VENCLEXTA [Suspect]
     Active Substance: VENETOCLAX
     Route: 048
     Dates: start: 20190329, end: 20190418
  4. IPILIMUMAB [Concomitant]
     Active Substance: IPILIMUMAB
     Indication: ACUTE MYELOID LEUKAEMIA
  5. VENCLEXTA [Suspect]
     Active Substance: VENETOCLAX
     Route: 048
  6. VENCLEXTA [Suspect]
     Active Substance: VENETOCLAX
     Route: 048
     Dates: start: 20181201, end: 20181214
  7. VENCLEXTA [Suspect]
     Active Substance: VENETOCLAX
     Indication: ACUTE MYELOID LEUKAEMIA
     Route: 048
     Dates: start: 20180608, end: 20180628
  8. VENCLEXTA [Suspect]
     Active Substance: VENETOCLAX
     Route: 048
     Dates: start: 20180920, end: 20181003
  9. VENCLEXTA [Suspect]
     Active Substance: VENETOCLAX
     Route: 048
     Dates: start: 20181022, end: 20181104
  10. DECITABINE. [Concomitant]
     Active Substance: DECITABINE
     Indication: ACUTE MYELOID LEUKAEMIA
     Dosage: FIVE DAY REGIMENS
     Route: 042
  11. NIVOLUMAB [Concomitant]
     Active Substance: NIVOLUMAB
     Indication: ACUTE MYELOID LEUKAEMIA
  12. VENCLEXTA [Suspect]
     Active Substance: VENETOCLAX
     Indication: ACUTE MYELOID LEUKAEMIA
     Route: 048
     Dates: start: 20180506, end: 20180527
  13. AZACITIDINE. [Concomitant]
     Active Substance: AZACITIDINE
     Indication: ACUTE MYELOID LEUKAEMIA
  14. GEMTUZUMAB [Concomitant]
     Active Substance: GEMTUZUMAB OZOGAMICIN
     Indication: PRODUCT USED FOR UNKNOWN INDICATION

REACTIONS (16)
  - Skin discolouration [Unknown]
  - Malaise [Unknown]
  - Asthenia [Recovered/Resolved]
  - Epistaxis [Unknown]
  - Pyrexia [Recovered/Resolved]
  - Acute myeloid leukaemia [Fatal]
  - Lip injury [Unknown]
  - Immune system disorder [Unknown]
  - Facial bones fracture [Unknown]
  - Hypertension [Unknown]
  - Eye contusion [Unknown]
  - Recurrent cancer [Unknown]
  - Heart rate increased [Unknown]
  - Therapeutic product effect decreased [Unknown]
  - Pneumonitis [Unknown]
  - Fall [Unknown]

NARRATIVE: CASE EVENT DATE: 2018
